FAERS Safety Report 8333556-7 (Version None)
Quarter: 2012Q2

REPORT INFORMATION
  Report Type: 
  Country: None (occurrence: None)
  Receive Date: 20120503
  Receipt Date: 20101115
  Transmission Date: 20120825
  Serious: No
  Sender: FDA-Public Use
  Company Number: US-TEVA-2010005949

PATIENT
  Sex: Female
  Weight: 123.94 kg

DRUGS (3)
  1. NUVIGIL [Suspect]
     Indication: FIBROMYALGIA
     Route: 048
     Dates: start: 20090101, end: 20100801
  2. AVIANE-28 [Concomitant]
  3. CYMBALTA [Concomitant]

REACTIONS (2)
  - INSOMNIA [None]
  - WEIGHT INCREASED [None]
